FAERS Safety Report 6176915-3 (Version None)
Quarter: 2009Q2

REPORT INFORMATION
  Report Type: 
  Country: None (occurrence: None)
  Receive Date: 20090501
  Receipt Date: 20090417
  Transmission Date: 20091009
  Serious: Yes (Other)
  Sender: FDA-Public Use
  Company Number: JP-ROCHE-627636

PATIENT
  Age: 57 Year
  Sex: Female

DRUGS (9)
  1. CELLCEPT [Suspect]
     Indication: GRAFT VERSUS HOST DISEASE
     Route: 048
  2. TACROLIMUS [Concomitant]
     Dosage: ROUTE: INTRAVENOUS DRIP
     Route: 042
  3. TACROLIMUS [Concomitant]
     Dosage: ROUTE: INTRAVENOUS (NOT OTHERWISE SPECIFIED)
     Route: 042
  4. METHOTREXATE [Concomitant]
     Route: 041
  5. METHYLPREDNISOLONE SODIUM SUCCINATE [Concomitant]
     Route: 041
  6. METHYLPREDNISOLONE SODIUM SUCCINATE [Concomitant]
     Route: 041
  7. METHYLPREDNISOLONE SODIUM SUCCINATE [Concomitant]
     Route: 041
  8. METHYLPREDNISOLONE SODIUM SUCCINATE [Concomitant]
     Route: 041
  9. REMICADE [Concomitant]
     Route: 041

REACTIONS (6)
  - BACTERIAL INFECTION [None]
  - CYTOMEGALOVIRUS INFECTION [None]
  - NAUSEA [None]
  - SUBILEUS [None]
  - THROMBOTIC MICROANGIOPATHY [None]
  - VOMITING [None]
